FAERS Safety Report 15387817 (Version 3)
Quarter: 2019Q2

REPORT INFORMATION
  Report Type: Report from Study
  Country: US (occurrence: US)
  Receive Date: 20180914
  Receipt Date: 20190405
  Transmission Date: 20190711
  Serious: Yes (Other)
  Sender: FDA-Public Use
  Company Number: PHEH2018US037759

PATIENT
  Sex: Female

DRUGS (1)
  1. GILENYA [Suspect]
     Active Substance: FINGOLIMOD HYDROCHLORIDE
     Indication: PRODUCT USED FOR UNKNOWN INDICATION
     Dosage: UNK
     Route: 065

REACTIONS (7)
  - Migraine [Unknown]
  - Mental impairment [Unknown]
  - Confusional state [Unknown]
  - Gastroenteritis viral [Unknown]
  - Malaise [Unknown]
  - Nausea [Unknown]
  - Headache [Unknown]
